FAERS Safety Report 15420356 (Version 3)
Quarter: 2018Q4

REPORT INFORMATION
  Report Type: Spontaneous
  Country: US (occurrence: US)
  Receive Date: 20180924
  Receipt Date: 20181017
  Transmission Date: 20190204
  Serious: Yes (Other)
  Sender: FDA-Public Use
  Company Number: US-SA-2018SA259746

PATIENT
  Age: 82 Year
  Sex: Male

DRUGS (1)
  1. LANTUS [Suspect]
     Active Substance: INSULIN GLARGINE
     Indication: TYPE 2 DIABETES MELLITUS
     Dosage: 20 UNITS IN THE EVENING  AND 6 UNITS AFTER BREAKFAST DAILY.
     Route: 065

REACTIONS (8)
  - Product use issue [Unknown]
  - Injection site haematoma [Recovering/Resolving]
  - Product dose omission [Unknown]
  - Device issue [Unknown]
  - Underdose [Unknown]
  - Blood glucose abnormal [Unknown]
  - Contusion [Unknown]
  - Device operational issue [Unknown]
